FAERS Safety Report 7812374-X (Version None)
Quarter: 2011Q4

REPORT INFORMATION
  Report Type: 
  Country: None (occurrence: None)
  Receive Date: 20111013
  Receipt Date: 20111003
  Transmission Date: 20120403
  Serious: Yes (Other)
  Sender: FDA-Public Use
  Company Number: GR-GLAXOSMITHKLINE-B0754368A

PATIENT
  Sex: Female

DRUGS (1)
  1. PROMACTA [Suspect]
     Indication: IDIOPATHIC THROMBOCYTOPENIC PURPURA
     Dosage: 75MG PER DAY
     Route: 065
     Dates: start: 20110706, end: 20110901

REACTIONS (3)
  - PYREXIA [None]
  - DYSPNOEA [None]
  - PULMONARY EMBOLISM [None]
